FAERS Safety Report 16173541 (Version 1)
Quarter: 2019Q2

REPORT INFORMATION
  Report Type: Spontaneous
  Country: US (occurrence: US)
  Receive Date: 20190408
  Receipt Date: 20190408
  Transmission Date: 20190711
  Serious: No
  Sender: FDA-Public Use
  Company Number: None

PATIENT
  Age: 71 Year
  Sex: Male
  Weight: 96.75 kg

DRUGS (2)
  1. ALLOPURINOL 200 MG [Concomitant]
     Active Substance: ALLOPURINOL
  2. XARELTO [Suspect]
     Active Substance: RIVAROXABAN
     Dosage: ?          QUANTITY:1 TABLET(S);?
     Dates: start: 20190405, end: 20190408

REACTIONS (4)
  - Headache [None]
  - Dizziness [None]
  - Asthenia [None]
  - Abdominal discomfort [None]

NARRATIVE: CASE EVENT DATE: 20190405
